FAERS Safety Report 13709828 (Version 1)
Quarter: 2017Q2

REPORT INFORMATION
  Report Type: Spontaneous
  Country: US (occurrence: US)
  Receive Date: 20170630
  Receipt Date: 20170630
  Transmission Date: 20170830
  Serious: Yes (Hospitalization)
  Sender: FDA-Public Use
  Company Number: None

PATIENT
  Age: 87 Year
  Sex: Male

DRUGS (13)
  1. PROLIA [Suspect]
     Active Substance: DENOSUMAB
     Indication: SENILE OSTEOPOROSIS
     Dosage: 60MG Q 6 MONTHS SQ
     Route: 058
     Dates: start: 20151208
  2. FERROUS SULFATE. [Concomitant]
     Active Substance: FERROUS SULFATE
  3. CELEXA [Concomitant]
     Active Substance: CITALOPRAM HYDROBROMIDE
  4. RANEXA [Concomitant]
     Active Substance: RANOLAZINE
  5. PRANDIN [Concomitant]
     Active Substance: REPAGLINIDE
  6. ZOCOR [Concomitant]
     Active Substance: SIMVASTATIN
  7. PRILOSEC [Concomitant]
     Active Substance: OMEPRAZOLE MAGNESIUM
  8. VIADUR [Concomitant]
     Active Substance: LEUPROLIDE ACETATE\LIDOCAINE HYDROCHLORIDE
  9. SENNA LAXATIVE [Concomitant]
     Active Substance: SENNOSIDES
  10. PHOSPHA [Concomitant]
  11. LUPRON [Concomitant]
     Active Substance: LEUPROLIDE ACETATE
  12. LANTUS [Concomitant]
     Active Substance: INSULIN GLARGINE
  13. GABAPENTIN. [Concomitant]
     Active Substance: GABAPENTIN

REACTIONS (1)
  - Cardiac disorder [None]
